FAERS Safety Report 4935185-1 (Version None)
Quarter: 2006Q1

REPORT INFORMATION
  Report Type: 
  Country: None (occurrence: None)
  Receive Date: 20060302
  Receipt Date: 20060214
  Transmission Date: 20060701
  Serious: Yes (Hospitalization)
  Sender: FDA-Public Use
  Company Number: US 0403101185

PATIENT
  Age: 1 Day
  Sex: 0

DRUGS (3)
  1. ILETIN [Suspect]
     Dosage: TRANSPLACENTAL
     Route: 064
     Dates: start: 19930101, end: 19930101
  2. ILETIN [Suspect]
     Dosage: TRANSPLACENTAL
     Route: 064
     Dates: start: 19930101, end: 19930101
  3. PRENATAL VITAMINS [Concomitant]

REACTIONS (5)
  - ABORTION SPONTANEOUS [None]
  - DRUG EXPOSURE DURING PREGNANCY [None]
  - JAUNDICE NEONATAL [None]
  - PREGNANCY [None]
  - PREMATURE BABY [None]
